FAERS Safety Report 17884946 (Version 4)
Quarter: 2021Q4

REPORT INFORMATION
  Report Type: Report from Study
  Country: US (occurrence: US)
  Receive Date: 20200611
  Receipt Date: 20211210
  Transmission Date: 20220303
  Serious: No
  Sender: FDA-Public Use
  Company Number: US-SHIRE-US202019138

PATIENT
  Sex: Female

DRUGS (5)
  1. LANADELUMAB [Suspect]
     Active Substance: LANADELUMAB
     Indication: Product used for unknown indication
     Dosage: 300 MILLIGRAM, 1X/2WKS
     Route: 058
     Dates: start: 20200505
  2. KALBITOR [Suspect]
     Active Substance: ECALLANTIDE
     Indication: Product used for unknown indication
     Dosage: 30 MILLIGRAM, AS REQ^D
     Route: 058
     Dates: start: 20170725
  3. KALBITOR [Suspect]
     Active Substance: ECALLANTIDE
     Dosage: 30 MILLIGRAM, AS REQ^D
     Route: 058
     Dates: start: 20180222
  4. FIRAZYR [Suspect]
     Active Substance: ICATIBANT ACETATE
     Indication: Product used for unknown indication
     Dosage: 3ML/30MG, AS REQ^D
     Route: 058
     Dates: start: 20160527
  5. FIRAZYR [Suspect]
     Active Substance: ICATIBANT ACETATE
     Indication: Product used for unknown indication
     Dosage: 3ML/30MG, AS REQ^D
     Route: 058
     Dates: start: 20160527

REACTIONS (4)
  - Hereditary angioedema [Recovering/Resolving]
  - Infusion site pain [Recovered/Resolved]
  - Injection site reaction [Unknown]
  - Drug ineffective [Unknown]
